FAERS Safety Report 11043590 (Version 1)
Quarter: 2015Q2

REPORT INFORMATION
  Report Type: Report from Study
  Country: US (occurrence: US)
  Receive Date: 20150417
  Receipt Date: 20150417
  Transmission Date: 20150821
  Serious: Yes (Hospitalization)
  Sender: FDA-Public Use
  Company Number: US-ROCHE-1105805

PATIENT
  Age: 39 Year
  Sex: Male
  Weight: 94.5 kg

DRUGS (5)
  1. BEVACIZUMAB [Suspect]
     Active Substance: BEVACIZUMAB
     Indication: SYNOVIAL SARCOMA METASTATIC
     Dosage: STRENGTH: 25 MG/ML
     Route: 042
     Dates: start: 20120817
  2. LOSARTAN POTASSIUM. [Concomitant]
     Active Substance: LOSARTAN POTASSIUM
     Route: 048
  3. WARFARIN SODIUM. [Concomitant]
     Active Substance: WARFARIN SODIUM
     Route: 048
  4. VALPROIC ACID. [Suspect]
     Active Substance: VALPROIC ACID
     Indication: SYNOVIAL SARCOMA METASTATIC
     Dosage: 3500 MG/D D-4 TO D1 EVERY 3 WEEKS
     Route: 065
     Dates: start: 20120813, end: 20120817
  5. GABAPENTIN. [Concomitant]
     Active Substance: GABAPENTIN
     Route: 048

REACTIONS (1)
  - Body temperature increased [Recovered/Resolved]

NARRATIVE: CASE EVENT DATE: 20120819
